FAERS Safety Report 6241588-8 (Version None)
Quarter: 2009Q2

REPORT INFORMATION
  Report Type: 
  Country: None (occurrence: None)
  Receive Date: 20090623
  Receipt Date: 20051220
  Transmission Date: 20091009
  Serious: Yes (Hospitalization, Other)
  Sender: FDA-Public Use
  Company Number: PL-ROCHE-376233

PATIENT
  Sex: Female
  Weight: 60.1 kg

DRUGS (49)
  1. DACLIZUMAB [Suspect]
     Dosage: BASELINE VISIT
     Route: 042
     Dates: start: 20040320
  2. DACLIZUMAB [Suspect]
     Dosage: FREQUENCY PER PROTOCOL
     Route: 042
     Dates: start: 20040402
  3. MYCOPHENOLATE MOFETIL [Suspect]
     Route: 048
     Dates: start: 20040320
  4. MYCOPHENOLATE MOFETIL [Suspect]
     Route: 048
     Dates: start: 20040420
  5. MYCOPHENOLATE MOFETIL [Suspect]
     Route: 048
     Dates: start: 20040501
  6. MYCOPHENOLATE MOFETIL [Suspect]
     Route: 048
     Dates: start: 20040506, end: 20040520
  7. MYCOPHENOLATE MOFETIL [Suspect]
     Route: 048
     Dates: start: 20040524, end: 20040805
  8. MYCOPHENOLATE MOFETIL [Suspect]
     Dosage: FORMULATION: VIAL
     Route: 042
     Dates: start: 20040521, end: 20040523
  9. MYCOPHENOLATE MOFETIL [Suspect]
     Route: 048
     Dates: start: 20040810
  10. MYCOPHENOLATE MOFETIL [Suspect]
     Route: 048
     Dates: start: 20041013
  11. MYCOPHENOLATE MOFETIL [Suspect]
     Route: 048
     Dates: start: 20041025
  12. MYCOPHENOLATE MOFETIL [Suspect]
     Route: 048
     Dates: start: 20050225
  13. MYCOPHENOLATE MOFETIL [Suspect]
     Route: 048
     Dates: start: 20050325
  14. MYCOPHENOLATE MOFETIL [Suspect]
     Route: 048
     Dates: start: 20050704
  15. MYCOPHENOLATE MOFETIL [Suspect]
     Dosage: UNITS: GM
     Route: 048
     Dates: start: 20061117
  16. TACROLIMUS [Suspect]
     Route: 048
     Dates: start: 20040320, end: 20040322
  17. TACROLIMUS [Suspect]
     Route: 048
     Dates: start: 20040319, end: 20041012
  18. TACROLIMUS [Suspect]
     Route: 048
     Dates: start: 20041013
  19. TACROLIMUS [Suspect]
     Route: 048
     Dates: start: 20050304
  20. TACROLIMUS [Suspect]
     Dosage: FORMULATION: VIAL
     Route: 048
     Dates: start: 20040322, end: 20040418
  21. PREDNISONE [Suspect]
     Route: 048
     Dates: start: 20040322, end: 20040520
  22. PREDNISONE [Suspect]
     Route: 048
     Dates: start: 20040521, end: 20041013
  23. PREDNISONE [Suspect]
     Route: 048
     Dates: start: 20041014
  24. PREDNISONE [Suspect]
     Route: 048
     Dates: start: 20041020
  25. PREDNISONE [Suspect]
     Route: 048
     Dates: start: 20050324
  26. PREDNISONE [Suspect]
     Route: 048
     Dates: start: 20050705
  27. PREDNISOLONE [Suspect]
     Route: 048
     Dates: start: 20040322, end: 20040322
  28. METHYLPREDNISOLONE [Suspect]
     Route: 042
     Dates: start: 20040320, end: 20040322
  29. METHYLPREDNISOLONE [Suspect]
     Dosage: FORMULATION: VIAL
     Route: 042
     Dates: start: 20040415, end: 20040417
  30. METHYLPREDNISOLONE [Suspect]
     Dosage: FORMULATION: VIAL
     Route: 042
     Dates: start: 20040420, end: 20040422
  31. COTRIM [Concomitant]
     Dosage: DRUG NAME: CO-TROMOXAZOLE.
     Route: 048
     Dates: start: 20040320
  32. RANIGAST [Concomitant]
     Dosage: DRUG NAME: RANITIDINE
     Route: 048
     Dates: start: 20040320
  33. RANITIDINE [Concomitant]
     Dosage: FORMULATION: DRAG
     Route: 048
     Dates: start: 20040320
  34. NYSTATINE [Concomitant]
     Dosage: FORMULATION: DRAG
     Route: 048
     Dates: start: 20040320
  35. METOCARD [Concomitant]
     Route: 048
     Dates: start: 20040420
  36. FUROSEMIDE [Concomitant]
     Route: 048
     Dates: start: 20040324, end: 20040402
  37. FUROSEMIDE [Concomitant]
     Dosage: FREQUENCY REPORTED AS: 1 PER 1 SE
     Route: 048
     Dates: start: 20040403, end: 20040512
  38. FUROSEMIDE [Concomitant]
     Route: 048
     Dates: start: 20040513
  39. FUROSEMIDE [Concomitant]
     Route: 042
     Dates: start: 20040321, end: 20040323
  40. KALIPOZ [Concomitant]
     Dosage: FORMULATION: DRAG.
     Route: 048
     Dates: start: 20040513, end: 20040524
  41. KALIPOZ [Concomitant]
     Route: 048
     Dates: start: 20040525, end: 20041013
  42. KALIPOZ [Concomitant]
     Route: 048
     Dates: start: 20050311
  43. ACYCLOVIR [Concomitant]
     Route: 048
     Dates: start: 20040324, end: 20040330
  44. ACYCLOVIR [Concomitant]
     Route: 048
     Dates: start: 20041123, end: 20041128
  45. AUGMENTIN [Concomitant]
     Dosage: FORMULATION: VIAL
     Route: 042
     Dates: start: 20040329, end: 20040403
  46. CIPROFLOXACIN [Concomitant]
     Route: 042
     Dates: start: 20040513, end: 20040513
  47. CIPROFLOXACIN [Concomitant]
     Route: 048
     Dates: start: 20040513, end: 20040520
  48. DESMOPRESSIN ACETATE [Concomitant]
     Route: 042
     Dates: start: 20040528, end: 20040529
  49. GANCICLOVIR [Concomitant]
     Dosage: DRUG NAME: GANCYCLOVIR FORMULATION: VIAL
     Route: 042
     Dates: start: 20040505, end: 20040524

REACTIONS (2)
  - CYTOMEGALOVIRUS INFECTION [None]
  - HUMAN POLYOMAVIRUS INFECTION [None]
